FAERS Safety Report 6211950-8 (Version None)
Quarter: 2009Q2

REPORT INFORMATION
  Report Type: 
  Country: None (occurrence: None)
  Receive Date: 20090602
  Receipt Date: 20090528
  Transmission Date: 20091009
  Serious: Yes (Other)
  Sender: FDA-Public Use
  Company Number: US-AVENTIS-200913576US

PATIENT
  Sex: Female
  Weight: 107.5 kg

DRUGS (22)
  1. LANTUS [Suspect]
     Dosage: DOSE: 73 UNITS IN AM AND 70 UNITS IN PM
     Route: 058
  2. LANTUS [Suspect]
     Dosage: DOSE: 76 AM AND 76 PM
     Route: 058
  3. ADVAIR HFA [Concomitant]
     Indication: CHRONIC OBSTRUCTIVE PULMONARY DISEASE
     Dosage: DOSE: 2 PUFFS DAILY 500/50
     Dates: start: 19920101
  4. ALBUTEROL [Concomitant]
     Indication: CHRONIC OBSTRUCTIVE PULMONARY DISEASE
     Dosage: DOSE: 2 PUFFS
     Dates: start: 19920101
  5. COREG [Concomitant]
     Indication: HYPERTENSION
     Dates: start: 20080101
  6. CRESTOR [Concomitant]
  7. DIOVANE [Concomitant]
     Indication: CHRONIC OBSTRUCTIVE PULMONARY DISEASE
  8. PLAVIX [Concomitant]
  9. GLUCOPHAGE [Concomitant]
     Dosage: DOSE: 1000 MG
  10. HUMALOG [Concomitant]
     Dosage: DOSE: WITH MEALS PER CARB COUNT
     Dates: start: 19890101
  11. RANEXA [Concomitant]
  12. ZOLOFT [Concomitant]
  13. ZETIA [Concomitant]
  14. LASIX [Concomitant]
  15. PREVACID [Concomitant]
  16. NIASPAN [Concomitant]
  17. NEUROTIN                           /01003001/ [Concomitant]
  18. IMDUR [Concomitant]
  19. OXYGEN [Concomitant]
     Dosage: DOSE: 2 LITERS AS NEEDED
  20. NITROGLYCERIN [Concomitant]
  21. LEXAPRO [Concomitant]
  22. ASPIRIN [Concomitant]

REACTIONS (2)
  - CEREBROVASCULAR ACCIDENT [None]
  - HYPOKINESIA [None]
